FAERS Safety Report 8571453-2 (Version None)
Quarter: 2012Q3

REPORT INFORMATION
  Report Type: 
  Country: None (occurrence: None)
  Receive Date: 20120806
  Receipt Date: 20120731
  Transmission Date: 20120928
  Serious: Yes (Life-Threatening)
  Sender: FDA-Public Use
  Company Number: CA-JNJFOC-20120801248

PATIENT
  Age: 7 Day

DRUGS (1)
  1. TYLENOL W/ CODEINE [Suspect]
     Indication: EXPOSURE DURING BREAST FEEDING
     Route: 063

REACTIONS (3)
  - LETHARGY [None]
  - MIOSIS [None]
  - BREAST FEEDING [None]
